FAERS Safety Report 5682577-1 (Version None)
Quarter: 2008Q1

REPORT INFORMATION
  Report Type: 
  Country: None (occurrence: None)
  Receive Date: 20080327
  Receipt Date: 20071219
  Transmission Date: 20080703
  Serious: No
  Sender: FDA-Public Use
  Company Number: US-BRISTOL-MYERS SQUIBB COMPANY-14019525

PATIENT

DRUGS (1)
  1. ORENCIA [Suspect]
     Dates: start: 20071212

REACTIONS (1)
  - HEADACHE [None]
